FAERS Safety Report 4682133-8 (Version None)
Quarter: 2005Q2

REPORT INFORMATION
  Report Type: 
  Country: None (occurrence: None)
  Receive Date: 20050603
  Receipt Date: 20050603
  Transmission Date: 20051028
  Serious: Yes (Hospitalization)
  Sender: FDA-Public Use
  Company Number: None

PATIENT
  Age: 57 Year
  Sex: Male
  Weight: 90.7194 kg

DRUGS (3)
  1. CISPLATIN [Suspect]
  2. 5-FU [Suspect]
  3. RADIATION [Suspect]

REACTIONS (4)
  - ANASTOMOTIC LEAK [None]
  - EMPYEMA [None]
  - PNEUMONIA [None]
  - SEPTIC SHOCK [None]
